FAERS Safety Report 24590765 (Version 5)
Quarter: 2025Q1

REPORT INFORMATION
  Report Type: Spontaneous
  Country: BR (occurrence: BR)
  Receive Date: 20241107
  Receipt Date: 20250316
  Transmission Date: 20250409
  Serious: No
  Sender: JOHNSON AND JOHNSON
  Company Number: BR-JNJFOC-20241071083

PATIENT
  Sex: Female

DRUGS (1)
  1. SIMPONI [Suspect]
     Active Substance: GOLIMUMAB
     Indication: Product used for unknown indication
     Route: 058

REACTIONS (3)
  - Product dose omission issue [Unknown]
  - Accidental exposure to product [Unknown]
  - Device leakage [Unknown]
